FAERS Safety Report 25360071 (Version 1)
Quarter: 2025Q2

REPORT INFORMATION
  Report Type: Spontaneous
  Country: JP (occurrence: JP)
  Receive Date: 20250527
  Receipt Date: 20250527
  Transmission Date: 20250716
  Serious: Yes (Other)
  Sender: GLAXOSMITHKLINE
  Company Number: JP-GSK-JP2025062991

PATIENT

DRUGS (1)
  1. MOMELOTINIB [Suspect]
     Active Substance: MOMELOTINIB
     Indication: Myelofibrosis
     Dosage: 100 MG, 1D
     Route: 048
     Dates: start: 20241216

REACTIONS (2)
  - Myelofibrosis [Not Recovered/Not Resolved]
  - Organ failure [Not Recovered/Not Resolved]
